FAERS Safety Report 23567375 (Version 1)
Quarter: 2024Q1

REPORT INFORMATION
  Report Type: Spontaneous
  Country: US (occurrence: US)
  Receive Date: 20240226
  Receipt Date: 20240226
  Transmission Date: 20240410
  Serious: No
  Sender: FDA-Public Use
  Company Number: US-AMNEAL PHARMACEUTICALS-2023-AMRX-00433

PATIENT
  Sex: Female

DRUGS (5)
  1. RYTARY [Suspect]
     Active Substance: CARBIDOPA\LEVODOPA
     Indication: Product used for unknown indication
     Dosage: 48.75/195 MILLIGRAM, 1 CAPSULES, 3 /DAY
     Route: 048
     Dates: end: 20221207
  2. RYTARY [Suspect]
     Active Substance: CARBIDOPA\LEVODOPA
     Dosage: 48.75/195 MILLIGRAM, 1 CAPSULES, 2 /DAY (AT 8 AM AND 5 PM)
     Route: 048
     Dates: start: 20221207
  3. RYTARY [Suspect]
     Active Substance: CARBIDOPA\LEVODOPA
     Dosage: 48.75/195 MILLIGRAM, 1 CAPSULES, 3 /DAY
     Route: 048
     Dates: end: 20221207
  4. RYTARY [Suspect]
     Active Substance: CARBIDOPA\LEVODOPA
     Dosage: 48.75/195 MILLIGRAM, 1 CAPSULES, 4 /DAY (AT 7AM, 11AM, 3PM AND 7PM)
     Route: 048
     Dates: start: 20230508, end: 20231103
  5. RYTARY [Suspect]
     Active Substance: CARBIDOPA\LEVODOPA
     Dosage: 61.25/245 MILLIGRAM, 1 CAPSULES, 4 /DAY (AT 7AM, 11AM, 3PM AND 7PM)
     Route: 048
     Dates: start: 20231103

REACTIONS (2)
  - Musculoskeletal stiffness [Unknown]
  - Product use issue [Unknown]
